FAERS Safety Report 8989198 (Version 1)
Quarter: 2012Q4

REPORT INFORMATION
  Report Type: 
  Country: NL (occurrence: NL)
  Receive Date: 20121227
  Receipt Date: 20121227
  Transmission Date: 20130627
  Serious: Yes (Other)
  Sender: FDA-Public Use
  Company Number: NL-009507513-1212NLD005110

PATIENT

DRUGS (3)
  1. ZOCOR [Suspect]
     Dosage: UNK
     Route: 048
     Dates: start: 2000, end: 2002
  2. ZOCOR [Suspect]
     Dosage: UNK
     Route: 048
     Dates: start: 2002, end: 2011
  3. MK-9350 [Suspect]

REACTIONS (7)
  - Tendonitis [Recovered/Resolved]
  - Pain [Recovered/Resolved]
  - Tendonitis [Recovered/Resolved]
  - Arthritis [Unknown]
  - Oedema peripheral [Unknown]
  - Polymyalgia rheumatica [Unknown]
  - Cardiac failure [Unknown]
